FAERS Safety Report 7874791-1 (Version None)
Quarter: 2011Q4

REPORT INFORMATION
  Report Type: 
  Country: None (occurrence: None)
  Receive Date: 20111031
  Receipt Date: 20111021
  Transmission Date: 20120403
  Serious: Yes (Other)
  Sender: FDA-Public Use
  Company Number: US-US-EMD SERONO, INC.-7091433

PATIENT
  Sex: Male
  Weight: 86 kg

DRUGS (2)
  1. REBIF [Suspect]
     Indication: MULTIPLE SCLEROSIS
     Route: 058
     Dates: start: 20101025
  2. IBUPROFEN (ADVIL) [Concomitant]
     Indication: PREMEDICATION

REACTIONS (3)
  - PYREXIA [None]
  - OPTIC NERVE DISORDER [None]
  - SENSORY DISTURBANCE [None]
